FAERS Safety Report 19355279 (Version 1)
Quarter: 2021Q2

REPORT INFORMATION
  Report Type: Spontaneous
  Country: US (occurrence: US)
  Receive Date: 20210601
  Receipt Date: 20210601
  Transmission Date: 20210717
  Serious: Yes (Hospitalization)
  Sender: FDA-Public Use
  Company Number: None

PATIENT
  Age: 72 Year
  Sex: Female

DRUGS (1)
  1. AMBRISENTAN TAB 10MG [Suspect]
     Active Substance: AMBRISENTAN
     Route: 048
     Dates: start: 202009

REACTIONS (5)
  - Heart valve replacement [None]
  - Renal failure [None]
  - Contrast media reaction [None]
  - Cardiac failure [None]
  - Pneumonia aspiration [None]

NARRATIVE: CASE EVENT DATE: 20210507
